FAERS Safety Report 21361188 (Version 2)
Quarter: 2022Q3

REPORT INFORMATION
  Report Type: Spontaneous
  Country: AU (occurrence: None)
  Receive Date: 20220921
  Receipt Date: 20220922
  Transmission Date: 20221027
  Serious: Yes (Other)
  Sender: FDA-Public Use
  Company Number: 2022A323601

PATIENT
  Age: 70 Year
  Sex: Female

DRUGS (14)
  1. ARIMIDEX [Suspect]
     Active Substance: ANASTROZOLE
     Indication: Breast cancer metastatic
     Route: 048
     Dates: end: 2013
  2. ARIMIDEX [Suspect]
     Active Substance: ANASTROZOLE
     Indication: Breast cancer metastatic
     Route: 048
     Dates: start: 20150526, end: 20151110
  3. TAMOXIFEN CITRATE [Suspect]
     Active Substance: TAMOXIFEN CITRATE
     Route: 048
     Dates: start: 20170221, end: 20170919
  4. FASLODEX [Suspect]
     Active Substance: FULVESTRANT
     Route: 030
     Dates: start: 20180508
  5. ZOMETA [Concomitant]
     Active Substance: ZOLEDRONIC ACID
     Dosage: SIX DOSES
     Dates: start: 201408
  6. HERCEPTIN [Concomitant]
     Active Substance: TRASTUZUMAB
     Dates: start: 20150519
  7. PERTUZUMAB [Concomitant]
     Active Substance: PERTUZUMAB
     Dates: start: 20150519
  8. AROMASIN [Concomitant]
     Active Substance: EXEMESTANE
     Dates: start: 20151110, end: 20170221
  9. DENOSUMAB [Concomitant]
     Active Substance: DENOSUMAB
     Dates: start: 201601
  10. DENOSUMAB [Concomitant]
     Active Substance: DENOSUMAB
     Dates: start: 20180110
  11. CALTRATE WITH VITAMIN D [Concomitant]
     Active Substance: CALCIUM CARBONATE\CHOLECALCIFEROL
     Dates: start: 201601
  12. CALTRATE WITH VITAMIN D [Concomitant]
     Active Substance: CALCIUM CARBONATE\CHOLECALCIFEROL
     Dates: start: 20180110
  13. FEMARA [Concomitant]
     Active Substance: LETROZOLE
     Dates: start: 20170919, end: 20180508
  14. ABRAXANE [Concomitant]
     Active Substance: PACLITAXEL
     Dates: start: 20210514

REACTIONS (8)
  - Malignant neoplasm progression [Unknown]
  - Neuropathy peripheral [Unknown]
  - Tooth infection [Unknown]
  - Breast cancer recurrent [Unknown]
  - Acute kidney injury [Unknown]
  - Hydronephrosis [Unknown]
  - Bone marrow oedema [Unknown]
  - Metastases to bone [Unknown]

NARRATIVE: CASE EVENT DATE: 20211125
